FAERS Safety Report 4988069-7 (Version None)
Quarter: 2006Q2

REPORT INFORMATION
  Report Type: 
  Country: None (occurrence: None)
  Receive Date: 20060425
  Receipt Date: 20060406
  Transmission Date: 20061013
  Serious: Yes (Hospitalization)
  Sender: FDA-Public Use
  Company Number: 2006049248

PATIENT
  Age: 73 Year
  Sex: Female

DRUGS (10)
  1. ARTHROTEC [Suspect]
     Indication: ILL-DEFINED DISORDER
     Dosage: ORAL
     Route: 048
  2. TENORETIC 100 [Suspect]
     Indication: ILL-DEFINED DISORDER
     Dosage: UNKNOWN
     Route: 065
  3. RANITIDINE HCL [Suspect]
     Indication: ILL-DEFINED DISORDER
     Dosage: UNKNOWN
     Route: 065
  4. HUMIRA [Suspect]
     Indication: RHEUMATOID ARTHRITIS
     Dosage: UNKNOWN (INTERVAL: 1 EVERY 2 WEEKS), UNKNOWN
     Route: 065
     Dates: start: 20040415
  5. ALENDRONIC ACID (ALENDRONIC ACID) [Suspect]
     Indication: ILL-DEFINED DISORDER
     Dosage: UNKNOWN
     Route: 065
  6. ETIDRONIC ACID (ETIDRONIC ACID) [Suspect]
     Indication: ILL-DEFINED DISORDER
     Dosage: UNKNOWN
     Route: 065
  7. FOLIC ACID [Suspect]
     Indication: ILL-DEFINED DISORDER
     Dosage: UNKNOWN
     Route: 065
  8. OMEPRAZOLE [Suspect]
     Indication: ILL-DEFINED DISORDER
     Dosage: UNKNOWN
     Route: 065
  9. METHOTREXATE [Concomitant]
  10. PREDNISOLONE [Concomitant]

REACTIONS (2)
  - GASTROENTERITIS ESCHERICHIA COLI [None]
  - URINARY TRACT INFECTION [None]
